FAERS Safety Report 5152266-0 (Version None)
Quarter: 2006Q4

REPORT INFORMATION
  Report Type: 
  Country: None (occurrence: None)
  Receive Date: 20061116
  Receipt Date: 20061102
  Transmission Date: 20070319
  Serious: Yes (Death)
  Sender: FDA-Public Use
  Company Number: NO-MERCK-0611NOR00004

PATIENT
  Age: 62 Year
  Sex: Male

DRUGS (8)
  1. HYZAAR [Suspect]
     Indication: CARDIAC FAILURE
     Route: 048
  2. SPIRIX [Suspect]
     Indication: CARDIAC FAILURE
     Route: 048
  3. WARFARIN SODIUM [Concomitant]
     Route: 065
  4. ASPIRIN AND MAGNESIUM OXIDE [Concomitant]
     Route: 048
  5. ALLOPURINOL SODIUM [Concomitant]
     Route: 048
  6. FUROSEMIDE [Concomitant]
     Route: 048
  7. ATORVASTATIN CALCIUM [Concomitant]
     Route: 065
  8. CARVEDILOL [Concomitant]
     Route: 048

REACTIONS (2)
  - CARDIAC FAILURE [None]
  - RENAL FAILURE [None]
